FAERS Safety Report 5759241-3 (Version None)
Quarter: 2008Q2

REPORT INFORMATION
  Report Type: 
  Country: None (occurrence: None)
  Receive Date: 20080604
  Receipt Date: 20080523
  Transmission Date: 20081010
  Serious: Yes (Life-Threatening, Other)
  Sender: FDA-Public Use
  Company Number: TR-PFIZER INC-2008045896

PATIENT
  Sex: Female
  Weight: 64 kg

DRUGS (1)
  1. ZIPRASIDONE (CAPS) [Suspect]
     Dosage: DAILY DOSE:4400MG
     Route: 048

REACTIONS (6)
  - DYSPHAGIA [None]
  - MUSCLE CONTRACTIONS INVOLUNTARY [None]
  - OVERDOSE [None]
  - PAIN IN EXTREMITY [None]
  - SOMNOLENCE [None]
  - URINARY INCONTINENCE [None]
